FAERS Safety Report 22377022 (Version 1)
Quarter: 2023Q2

REPORT INFORMATION
  Report Type: Spontaneous
  Country: None (occurrence: US)
  Receive Date: 20230529
  Receipt Date: 20230529
  Transmission Date: 20230721
  Serious: Yes (Death, Hospitalization, Other)
  Sender: FDA-Public Use
  Company Number: US-Oxford Pharmaceuticals, LLC-2142080

PATIENT
  Age: 40 Year
  Sex: Female

DRUGS (1)
  1. SERTRALINE HYDROCHLORIDE [Suspect]
     Active Substance: SERTRALINE HYDROCHLORIDE
     Indication: Product used for unknown indication

REACTIONS (5)
  - Brain death [Fatal]
  - Ventricular fibrillation [Fatal]
  - Cardiac arrest [Fatal]
  - Long QT syndrome [Fatal]
  - Torsade de pointes [Fatal]
